FAERS Safety Report 4463498-9 (Version None)
Quarter: 2004Q3

REPORT INFORMATION
  Report Type: 
  Country: None (occurrence: None)
  Receive Date: 20040930
  Receipt Date: 20040803
  Transmission Date: 20050211
  Serious: Yes (Life-Threatening, Other)
  Sender: FDA-Public Use
  Company Number: US-MERCK-0408USA00332

PATIENT
  Age: 36 Year
  Sex: Female
  Weight: 72 kg

DRUGS (2)
  1. CLARITIN [Concomitant]
     Indication: HYPERSENSITIVITY
     Route: 048
  2. SINGULAIR [Suspect]
     Indication: RHINITIS
     Route: 048
     Dates: start: 20040706, end: 20040715

REACTIONS (4)
  - PRURITUS [None]
  - RASH [None]
  - THROAT IRRITATION [None]
  - THROAT TIGHTNESS [None]
